FAERS Safety Report 4332258-1 (Version None)
Quarter: 2004Q1

REPORT INFORMATION
  Report Type: 
  Country: None (occurrence: None)
  Receive Date: 20040329
  Receipt Date: 20040315
  Transmission Date: 20041129
  Serious: Yes (Hospitalization)
  Sender: FDA-Public Use
  Company Number: S04-USA-01540-01

PATIENT
  Age: 57 Year
  Sex: Female

DRUGS (3)
  1. LEXAPRO [Suspect]
     Indication: DEPRESSION
     Dosage: 10 MG QD PO
     Route: 048
     Dates: start: 20040127, end: 20040204
  2. WELLBUTRIN SR [Suspect]
     Indication: DEPRESSION
     Dosage: 150 MG QD
     Dates: start: 20040202, end: 20040215
  3. PROZAC [Concomitant]

REACTIONS (2)
  - PETIT MAL EPILEPSY [None]
  - TREMOR [None]
